FAERS Safety Report 4851007-1 (Version None)
Quarter: 2005Q4

REPORT INFORMATION
  Report Type: 
  Country: None (occurrence: None)
  Receive Date: 20051212
  Receipt Date: 20051130
  Transmission Date: 20060501
  Serious: Yes (Hospitalization)
  Sender: FDA-Public Use
  Company Number: JP-MERCK-0512USA00436

PATIENT
  Age: 18 Year
  Sex: Female

DRUGS (6)
  1. CLINORIL [Suspect]
     Indication: NECK MASS
     Route: 048
     Dates: start: 19840705
  2. CLINORIL [Suspect]
     Route: 048
     Dates: start: 19840626, end: 19840630
  3. CLINORIL [Suspect]
     Indication: FEELING ABNORMAL
     Route: 048
     Dates: start: 19840705
  4. CLINORIL [Suspect]
     Route: 048
     Dates: start: 19840626, end: 19840630
  5. PROPYLENE GLYCOL [Concomitant]
     Indication: FEELING ABNORMAL
     Route: 048
     Dates: start: 19840705
  6. PROPYLENE GLYCOL [Concomitant]
     Route: 048
     Dates: start: 19840626, end: 19840630

REACTIONS (4)
  - HEADACHE [None]
  - HYPERTHERMIA [None]
  - MALAISE [None]
  - RASH [None]
